FAERS Safety Report 25045211 (Version 2)
Quarter: 2025Q3

REPORT INFORMATION
  Report Type: Report from Study
  Country: ZA (occurrence: ZA)
  Receive Date: 20250306
  Receipt Date: 20250809
  Transmission Date: 20251020
  Serious: Yes (Hospitalization, Other)
  Sender: ALEXION PHARMACEUTICALS
  Company Number: ZA-AstraZeneca-CH-00816685A

PATIENT
  Age: 76 Year
  Sex: Female

DRUGS (4)
  1. BUDESONIDE\FORMOTEROL [Suspect]
     Active Substance: BUDESONIDE\FORMOTEROL
     Indication: Asthma
  2. ROSUVASTATIN [Concomitant]
     Active Substance: ROSUVASTATIN
     Indication: Blood cholesterol
  3. LEFLUNOMIDE [Concomitant]
     Active Substance: LEFLUNOMIDE
  4. Stopayne [Concomitant]
     Indication: Pain

REACTIONS (3)
  - Back disorder [Unknown]
  - Immunodeficiency [Unknown]
  - Gait disturbance [Unknown]
